FAERS Safety Report 15335370 (Version 1)
Quarter: 2018Q3

REPORT INFORMATION
  Report Type: Spontaneous
  Country: PL (occurrence: PL)
  Receive Date: 20180830
  Receipt Date: 20180830
  Transmission Date: 20181010
  Serious: Yes (Hospitalization, Other)
  Sender: FDA-Public Use
  Company Number: PHHY2018PL079248

PATIENT
  Age: 68 Year
  Sex: Male

DRUGS (3)
  1. METFORMIN [Suspect]
     Active Substance: METFORMIN HYDROCHLORIDE
     Indication: TYPE 2 DIABETES MELLITUS
     Dosage: 3000 MG, QD
     Route: 048
     Dates: start: 201405, end: 201708
  2. METFORMIN [Suspect]
     Active Substance: METFORMIN HYDROCHLORIDE
     Dosage: UNK
     Route: 048
     Dates: start: 201708
  3. INSULIN ASPART [Suspect]
     Active Substance: INSULIN ASPART
     Indication: TYPE 2 DIABETES MELLITUS
     Dosage: 22 UNITS AFTER BREAKFAST 12 AFTR LUNCH, 24 AFTER DINNER; INTERMEDIATE?ACTING 22 IN MORNING, 28 AT BE
     Route: 065

REACTIONS (6)
  - Diabetic nephropathy [Unknown]
  - Type 2 diabetes mellitus [Unknown]
  - Diabetic macroangiopathy [Unknown]
  - Hypoglycaemia [Unknown]
  - Diabetic retinopathy [Unknown]
  - Axonal neuropathy [Unknown]
